FAERS Safety Report 25323840 (Version 1)
Quarter: 2025Q2

REPORT INFORMATION
  Report Type: Spontaneous
  Country: BR (occurrence: BR)
  Receive Date: 20250516
  Receipt Date: 20250516
  Transmission Date: 20250717
  Serious: Yes (Other)
  Sender: ASTELLAS
  Company Number: BR-PFIZER INC-PV202500055811

PATIENT
  Sex: Female

DRUGS (2)
  1. PADCEV [Suspect]
     Active Substance: ENFORTUMAB VEDOTIN-EJFV
     Indication: Bladder transitional cell carcinoma stage III
     Route: 042
     Dates: start: 20240718, end: 202503
  2. PEMBROLIZUMAB [Concomitant]
     Active Substance: PEMBROLIZUMAB
     Indication: Bladder transitional cell carcinoma stage III
     Dosage: EVERY 42 DAYS?ONGOING
     Route: 065
     Dates: start: 20240718

REACTIONS (1)
  - Gastrointestinal toxicity [Unknown]

NARRATIVE: CASE EVENT DATE: 20250301
